FAERS Safety Report 16104521 (Version 7)
Quarter: 2021Q3

REPORT INFORMATION
  Report Type: Spontaneous
  Country: GB (occurrence: GB)
  Receive Date: 20190322
  Receipt Date: 20210819
  Transmission Date: 20211014
  Serious: Yes (Death, Life-Threatening, Hospitalization, Other)
  Sender: FDA-Public Use
  Company Number: GB-ALKEM LABORATORIES LIMITED-GB-ALKEM-2019-02485

PATIENT

DRUGS (15)
  1. PRAVASTATIN. [Suspect]
     Active Substance: PRAVASTATIN
     Indication: BLOOD CHOLESTEROL INCREASED
     Dosage: 40 MG, OD,(EVERY 1 DAY)
     Route: 048
  2. AMLODIPINE BESYLATE. [Suspect]
     Active Substance: AMLODIPINE BESYLATE
     Indication: HYPERTENSION
     Dosage: 100 MILLIGRAM, QD
     Route: 048
     Dates: start: 20180928, end: 20180928
  3. LOSARTAN. [Suspect]
     Active Substance: LOSARTAN
     Indication: HYPERTENSION
     Dosage: 200 MILLIGRAM, OD, (EVERY 1 DAY)
     Route: 048
     Dates: start: 20170317, end: 20180928
  4. HUMALOG MIX50/50 [Suspect]
     Active Substance: INSULIN LISPRO
     Dosage: 180INTERNATIONAL UNIT, OD, (EVERY 1 DAY)
     Route: 048
     Dates: end: 20180928
  5. EZETIMIBE. [Suspect]
     Active Substance: EZETIMIBE
     Indication: BLOOD CHOLESTEROL INCREASED
     Dosage: 10 MG, OD, (EVERY 1 DAY)
     Route: 048
     Dates: end: 20180928
  6. HUMALOG MIX50/50 [Suspect]
     Active Substance: INSULIN LISPRO
     Dosage: 30 MILLIGRAM, QD
     Route: 048
     Dates: end: 20180928
  7. FELODIPINE. [Suspect]
     Active Substance: FELODIPINE
     Indication: HYPERTENSION
     Dosage: 10 MG, OD, (EVERY 1 DAY)
     Route: 048
     Dates: end: 20180928
  8. CLOZARIL [Suspect]
     Active Substance: CLOZAPINE
     Indication: BLOOD CHOLESTEROL INCREASED
     Dosage: 10 MILLIGRAM, QD
     Route: 048
     Dates: end: 20180928
  9. PRAVASTATIN. [Suspect]
     Active Substance: PRAVASTATIN
     Indication: DEPRESSION
     Dosage: 50 MILLIGRAM, QD (SODIUM SALT OF PRAVASTATIN)
     Route: 048
     Dates: start: 201709
  10. LANSOPRAZOLE. [Suspect]
     Active Substance: LANSOPRAZOLE
     Indication: BLOOD CHOLESTEROL INCREASED
     Dosage: 40 MILLIGRAM, QD
     Route: 048
  11. SERTRALINE [Suspect]
     Active Substance: SERTRALINE HYDROCHLORIDE
     Indication: DEPRESSION
     Dosage: 50 MILLIGRAM, OD, (EVERY 1 DAY)
     Route: 048
     Dates: start: 201709, end: 20180928
  12. CLOZARIL [Suspect]
     Active Substance: CLOZAPINE
     Indication: SCHIZOPHRENIA
     Dosage: 200 MG, OD, (EVERY 1 DAY)
     Route: 048
     Dates: start: 20170317, end: 20180928
  13. LOSARTAN. [Suspect]
     Active Substance: LOSARTAN
     Indication: SCHIZOPHRENIA
  14. HUMALOG MIX50/50 [Suspect]
     Active Substance: INSULIN LISPRO
     Indication: DIABETES MELLITUS
     Dosage: 360 INTERNATIONAL UNIT, OD, (EVERY 1 DAY)
     Route: 048
     Dates: end: 20180928
  15. LANSOPRAZOLE. [Suspect]
     Active Substance: LANSOPRAZOLE
     Indication: GASTROOESOPHAGEAL REFLUX DISEASE
     Dosage: 30 MG, OD, (EVERY 1 DAY)
     Route: 065
     Dates: end: 20180928

REACTIONS (4)
  - Loss of consciousness [Fatal]
  - Pneumonia [Fatal]
  - Multiple organ dysfunction syndrome [Fatal]
  - Incorrect route of product administration [Unknown]

NARRATIVE: CASE EVENT DATE: 2018
